FAERS Safety Report 9905263 (Version 1)
Quarter: 2013Q2

REPORT INFORMATION
  Report Type: Spontaneous
  Country: US (occurrence: None)
  Receive Date: 20130305
  Receipt Date: 20130305
  Transmission Date: 20140414
  Serious: Yes (Hospitalization)
  Sender: FDA-Public Use
  Company Number: 163-21880-12030719

PATIENT
  Age: 74 Year
  Sex: Female

DRUGS (16)
  1. REVLIMID (LENALIDOMIDE) (5 MILLIGRAM, CAPSULES) [Suspect]
     Indication: PLASMA CELL MYELOMA
     Dosage: 5 MG, DAILY X 21 DAYS, PO
     Route: 048
     Dates: start: 20120304
  2. METFORMIN HCL (METFORMIN HYDROCHLORIDE) (UNKNOWN) [Concomitant]
  3. METOPROLOL TARTRATE (METOPROLOL TARTRATE) (UNKNOWN) [Concomitant]
  4. GABAPENTIN (GABAPENTIN) (UNKNOWN) (GABAPENTIN) [Concomitant]
  5. OMEPRAZOLE (OMEPRAZOLE) (UNKNOWN) [Concomitant]
  6. VYTORIN (INEGY) (UNKNOWN) [Concomitant]
  7. LEXAPRO (ESCITALOPRAM OXALATE) (UNKNOWN) [Concomitant]
  8. SPIRIVA HANDIHALER (TIOTROPIUM BROMIDE) (UNKNOWN)? [Concomitant]
  9. ADVARI HFA (SERETIDE MITE) (UNKNOWN) [Concomitant]
  10. WARFARIN SODIUM (WARFARIN SODIUM) (UNKNOWN) [Concomitant]
  11. IRON (IRON) (UNKNOWN) [Concomitant]
  12. ALPHA LIPOIC ACID (THIOCTIC ACID) (UNKNOWN) [Concomitant]
  13. VITAMIN D3 (COLECALCIFEROL) (UNKNOWN) [Concomitant]
  14. VITAMIN B12 (CYANOCOBALAMIN) (UNKNOWN) [Concomitant]
  15. PROAIR HFA (SALBUTAMOL SULFATE) (UNKNOWN) [Concomitant]
  16. GLYBURIDE (GLIBENCLAMIDE) (UNKNOWN) [Concomitant]

REACTIONS (1)
  - Infection [None]
